FAERS Safety Report 8548487-7 (Version None)
Quarter: 2012Q2

REPORT INFORMATION
  Report Type: 
  Country: None (occurrence: None)
  Receive Date: 20120416
  Receipt Date: 20110228
  Transmission Date: 20120825
  Serious: Yes (Other)
  Sender: FDA-Public Use
  Company Number: PHHY2011US14111

PATIENT
  Age: 68 Year
  Sex: Female

DRUGS (5)
  1. DIOVAN [Suspect]
     Indication: BLOOD PRESSURE
     Dates: start: 20110206
  2. VITAMINS NOS (NO INGREDIENTS/SUBSTANCES) [Concomitant]
  3. ALLEGRA [Suspect]
     Dosage: PERIDURAL
  4. BUSPIRONE HCL [Concomitant]
  5. ANTIBIOTICS (NO INGREDIENTS/SUBSTANCES) [Concomitant]

REACTIONS (7)
  - PHARYNGEAL OEDEMA [None]
  - DYSPNOEA [None]
  - PAIN [None]
  - PAIN IN EXTREMITY [None]
  - OEDEMA MOUTH [None]
  - BURNING SENSATION [None]
  - CARDIAC DISORDER [None]
